FAERS Safety Report 7525147-2 (Version None)
Quarter: 2011Q2

REPORT INFORMATION
  Report Type: 
  Country: None (occurrence: None)
  Receive Date: 20110606
  Receipt Date: 20110526
  Transmission Date: 20111010
  Serious: Yes (Hospitalization)
  Sender: FDA-Public Use
  Company Number: GB-TYCO HEALTHCARE/MALLINCKRODT-T201101132

PATIENT
  Age: 57 Year
  Sex: Female
  Weight: 78.6 kg

DRUGS (10)
  1. OMEPRAZOLE [Concomitant]
  2. CANDESARTAN CILEXETIL [Concomitant]
  3. FERROGRAD                          /00023506/ [Concomitant]
  4. SPIRONOLACTONE [Concomitant]
  5. CYCLIZINE [Concomitant]
  6. LEVOTHYROXINE SODIUM [Concomitant]
  7. ONDANSETRON [Concomitant]
  8. OPTIRAY 300 [Suspect]
     Indication: SCAN WITH CONTRAST
     Dosage: 100 ML, SINGLE
     Route: 042
     Dates: start: 20110323, end: 20110323
  9. CHEMOTHERAPEUTICS NOS [Concomitant]
     Indication: OVARIAN CANCER
  10. WARFARIN SODIUM [Concomitant]

REACTIONS (9)
  - COLD SWEAT [None]
  - CONTRAST MEDIA REACTION [None]
  - HYPERHIDROSIS [None]
  - DISTURBANCE IN ATTENTION [None]
  - TACHYCARDIA [None]
  - RETCHING [None]
  - PALLOR [None]
  - INCONTINENCE [None]
  - HYPOTENSION [None]
